FAERS Safety Report 9397624 (Version 1)
Quarter: 2013Q3

REPORT INFORMATION
  Report Type: Spontaneous
  Country: US (occurrence: None)
  Receive Date: 20130711
  Receipt Date: 20130711
  Transmission Date: 20140515
  Serious: Yes (Other)
  Sender: FDA-Public Use
  Company Number: None

PATIENT
  Age: 64 Year
  Sex: Male
  Weight: 89.81 kg

DRUGS (1)
  1. ZPACK [Suspect]
     Dates: start: 20130619, end: 20130629

REACTIONS (1)
  - Rash erythematous [None]
